FAERS Safety Report 6620198-4 (Version None)
Quarter: 2010Q1

REPORT INFORMATION
  Report Type: 
  Country: None (occurrence: None)
  Receive Date: 20100308
  Receipt Date: 20100308
  Transmission Date: 20100710
  Serious: Yes (Other)
  Sender: FDA-Public Use
  Company Number: None

PATIENT

DRUGS (4)
  1. BIOKITHSV2 RAPID TEST N/A BIO-DIAGNOSTICS LTD/BIOKIT USA [Suspect]
     Indication: DIAGNOSTIC PROCEDURE
  2. BIOKITHSV2 RAPID TEST N/A BIO-DIAGNOSTICS LTD/BIOKIT USA [Suspect]
     Indication: HERPES SIMPLEX
  3. BIOKIT HSV2 RAPID TEST N/A BIO-DIAGNOSTICS LTD/BIOKIT USA [Suspect]
     Indication: DIAGNOSTIC PROCEDURE
  4. BIOKIT HSV2 RAPID TEST N/A BIO-DIAGNOSTICS LTD/BIOKIT USA [Suspect]
     Indication: HERPES SIMPLEX

REACTIONS (2)
  - DEVICE MALFUNCTION [None]
  - FALSE POSITIVE LABORATORY RESULT [None]
